FAERS Safety Report 8158079-X (Version None)
Quarter: 2012Q1

REPORT INFORMATION
  Report Type: 
  Country: None (occurrence: None)
  Receive Date: 20120222
  Receipt Date: 20120216
  Transmission Date: 20120608
  Serious: Yes (Other)
  Sender: FDA-Public Use
  Company Number: ES-MERCK-1202ESP00024

PATIENT
  Age: 77 Year
  Sex: Female

DRUGS (1)
  1. JANUVIA [Suspect]
     Indication: DIABETES MELLITUS
     Route: 048
     Dates: start: 20100326, end: 20100505

REACTIONS (5)
  - MUSCULAR WEAKNESS [None]
  - PAIN IN EXTREMITY [None]
  - FATIGUE [None]
  - DIZZINESS [None]
  - OEDEMA [None]
